FAERS Safety Report 17171535 (Version 2)
Quarter: 2019Q4

REPORT INFORMATION
  Report Type: Spontaneous
  Country: UA (occurrence: UA)
  Receive Date: 20191218
  Receipt Date: 20191220
  Transmission Date: 20200122
  Serious: Yes (Other)
  Sender: FDA-Public Use
  Company Number: NVSC2019UA068148

PATIENT
  Age: 2 Year
  Sex: Female

DRUGS (6)
  1. COENZYME Q10 [Concomitant]
     Active Substance: UBIDECARENONE
     Indication: ANTIOXIDANT THERAPY
     Route: 065
  2. L-CARNITINE [Concomitant]
     Active Substance: LEVOCARNITINE
     Indication: ANTIOXIDANT THERAPY
     Route: 065
  3. CORYLIP [Concomitant]
     Indication: ANTIOXIDANT THERAPY
     Route: 065
  4. CYTOCHROME C [Concomitant]
     Indication: ANTIOXIDANT THERAPY
     Route: 065
  5. LEVETIRACETAM. [Suspect]
     Active Substance: LEVETIRACETAM
     Indication: SEIZURE
     Dosage: 50 MG/KG, QD
     Route: 065
  6. B-VITAMINS [Concomitant]
     Indication: ANTIOXIDANT THERAPY
     Route: 065

REACTIONS (3)
  - Cerebellar stroke [Unknown]
  - Hemiparesis [Unknown]
  - Myoclonic epilepsy [Unknown]
